FAERS Safety Report 4369198-8 (Version None)
Quarter: 2004Q2

REPORT INFORMATION
  Report Type: 
  Country: None (occurrence: None)
  Receive Date: 20040602
  Receipt Date: 20040602
  Transmission Date: 20050107
  Serious: Yes (Other)
  Sender: FDA-Public Use
  Company Number: None

PATIENT
  Age: 49 Year
  Sex: Female
  Weight: 60.782 kg

DRUGS (10)
  1. OMEPRAZOLE [Suspect]
     Indication: GASTROOESOPHAGEAL REFLUX DISEASE
     Dosage: 1 PO Q AM
     Route: 048
     Dates: start: 20040503, end: 20040510
  2. LAMCITADINE [Concomitant]
  3. XANAX [Concomitant]
  4. SINGULAIR [Concomitant]
  5. DOXEPIN HCL [Concomitant]
  6. PROZAC [Concomitant]
  7. ADVAIR DISKUS 100/50 [Concomitant]
  8. TOPAMAX [Concomitant]
  9. SEROQUEL [Concomitant]
  10. PULMICORT [Concomitant]

REACTIONS (6)
  - DIARRHOEA [None]
  - DRUG INEFFECTIVE [None]
  - GASTROOESOPHAGEAL REFLUX DISEASE [None]
  - HEADACHE [None]
  - STOMACH DISCOMFORT [None]
  - VOMITING [None]
